FAERS Safety Report 7808227-3 (Version None)
Quarter: 2011Q4

REPORT INFORMATION
  Report Type: 
  Country: None (occurrence: None)
  Receive Date: 20111011
  Receipt Date: 20111004
  Transmission Date: 20120403
  Serious: Yes (Hospitalization)
  Sender: FDA-Public Use
  Company Number: IT-BRISTOL-MYERS SQUIBB COMPANY-15498363

PATIENT
  Age: 66 Year
  Sex: Male
  Weight: 55 kg

DRUGS (6)
  1. CISPLATIN [Suspect]
     Indication: HEAD AND NECK CANCER
     Dosage: 37.5MG/M2 EVERY 21 DAYS,17DEC10-07JAN11 22DAYS.RECENT DOSE ON 07JAN11.
     Route: 042
     Dates: start: 20101217
  2. VITAMIN B-12 [Concomitant]
     Indication: PROPHYLAXIS
     Dates: start: 20101206
  3. FOLIC ACID [Concomitant]
     Indication: PROPHYLAXIS
     Dates: start: 20101206
  4. DEXAMETHASONE [Concomitant]
     Indication: PROPHYLAXIS
     Dates: start: 20101210
  5. CETUXIMAB [Suspect]
     Indication: HEAD AND NECK CANCER
     Dosage: LOADING DOSE DAY 1 CYCLE 1,17DEC10-17DEC10;250MG/M2 WEEKLY UNK-ONG.RECENT DOSE ON 07JAN11.
     Route: 042
     Dates: start: 20101217
  6. PEMETREXED DISODIUM [Suspect]
     Indication: HEAD AND NECK CANCER
     Dosage: DAY 1 EVERY 21 DAYS.RECENT DOSE ON 07JAN11.
     Route: 042
     Dates: start: 20101217

REACTIONS (5)
  - STAPHYLOCOCCAL SEPSIS [None]
  - PERFORMANCE STATUS DECREASED [None]
  - FANCONI SYNDROME [None]
  - PSEUDOMONAL SEPSIS [None]
  - HYPOTENSION [None]
